FAERS Safety Report 7517990-0 (Version None)
Quarter: 2011Q2

REPORT INFORMATION
  Report Type: 
  Country: None (occurrence: None)
  Receive Date: 20110602
  Receipt Date: 20110527
  Transmission Date: 20111010
  Serious: Yes (Death, Hospitalization, Other)
  Sender: FDA-Public Use
  Company Number: US-AMGEN-USASP2010000721

PATIENT
  Age: 69 Year
  Sex: Male
  Weight: 67.574 kg

DRUGS (6)
  1. NPLATE [Suspect]
     Indication: IDIOPATHIC THROMBOCYTOPENIC PURPURA
     Dosage: 1 A?G/KG, QWK
     Route: 058
     Dates: start: 20100413, end: 20100921
  2. AVASTIN [Concomitant]
     Dosage: 1313 MG, Q3WK
     Route: 042
     Dates: start: 20100223, end: 20100803
  3. CARBOPLATIN [Concomitant]
     Dosage: 660 MG, Q3WK
     Route: 042
     Dates: start: 20100112, end: 20100427
  4. ARANESP [Concomitant]
     Dosage: 300 MG, Q2WK
     Route: 058
     Dates: start: 20100424, end: 20100908
  5. TAXOL [Concomitant]
     Dosage: 150 MG, QWK
     Route: 042
     Dates: start: 20100803, end: 20100810
  6. ALINTAN [Concomitant]

REACTIONS (3)
  - ANAEMIA [None]
  - LUNG NEOPLASM MALIGNANT [None]
  - RESPIRATORY FAILURE [None]
